FAERS Safety Report 19752674 (Version 1)
Quarter: 2021Q3

REPORT INFORMATION
  Report Type: Spontaneous
  Country: US (occurrence: US)
  Receive Date: 20210827
  Receipt Date: 20210827
  Transmission Date: 20211014
  Serious: Yes (Hospitalization)
  Sender: FDA-Public Use
  Company Number: US-SPECGX-T202101981

PATIENT
  Sex: Male

DRUGS (3)
  1. OXYCODONE [Suspect]
     Active Substance: OXYCODONE
     Indication: BACK PAIN
  2. OXYCODONE [Suspect]
     Active Substance: OXYCODONE
     Indication: NECK PAIN
     Dosage: UNK
     Route: 065
  3. OXYCONTIN [Suspect]
     Active Substance: OXYCODONE HYDROCHLORIDE
     Indication: PRODUCT USED FOR UNKNOWN INDICATION
     Dosage: UNK
     Route: 065

REACTIONS (6)
  - Libido decreased [Unknown]
  - Overdose [Unknown]
  - Suicide attempt [Unknown]
  - Decreased appetite [Unknown]
  - Drug dependence [Unknown]
  - Tooth extraction [Unknown]

NARRATIVE: CASE EVENT DATE: 201701
